FAERS Safety Report 19176032 (Version 1)
Quarter: 2021Q2

REPORT INFORMATION
  Report Type: Spontaneous
  Country: CN (occurrence: CN)
  Receive Date: 20210423
  Receipt Date: 20210423
  Transmission Date: 20210717
  Serious: Yes (Other)
  Sender: FDA-Public Use
  Company Number: CN-B.BRAUN MEDICAL INC.-2109715

PATIENT
  Age: 35 Year
  Sex: Female

DRUGS (1)
  1. POTASSIUM CHLORIDE FOR INJECTION CONCENTRATE USP 0264?1940?20 (ANDA 08 [Suspect]
     Active Substance: POTASSIUM CHLORIDE
     Indication: SELECTIVE ABORTION

REACTIONS (1)
  - Premature labour [None]
